FAERS Safety Report 19018389 (Version 1)
Quarter: 2021Q1

REPORT INFORMATION
  Report Type: Spontaneous
  Country: US (occurrence: US)
  Receive Date: 20210316
  Receipt Date: 20210316
  Transmission Date: 20210420
  Serious: No
  Sender: FDA-Public Use
  Company Number: None

PATIENT
  Sex: Female

DRUGS (2)
  1. ORENCIA [Suspect]
     Active Substance: ABATACEPT
  2. REMICADE [Suspect]
     Active Substance: INFLIXIMAB

REACTIONS (2)
  - Drug intolerance [None]
  - Drug ineffective [None]
